FAERS Safety Report 4275829-3 (Version None)
Quarter: 2004Q1

REPORT INFORMATION
  Report Type: 
  Country: None (occurrence: None)
  Receive Date: 20040121
  Receipt Date: 20021209
  Transmission Date: 20041129
  Serious: Yes (Hospitalization)
  Sender: FDA-Public Use
  Company Number: US-GLAXOSMITHKLINE-A0388519A

PATIENT
  Age: 32 Year
  Sex: Male

DRUGS (3)
  1. VALTREX [Suspect]
     Dosage: 1CAPL THREE TIMES PER DAY
     Route: 048
     Dates: start: 20021202, end: 20021203
  2. AVALIDE [Concomitant]
  3. AVAPRO [Concomitant]

REACTIONS (6)
  - ABDOMINAL PAIN [None]
  - ABDOMINAL PAIN LOWER [None]
  - ABDOMINAL PAIN UPPER [None]
  - HEPATIC ENZYME INCREASED [None]
  - HEPATITIS [None]
  - WHITE BLOOD CELL COUNT DECREASED [None]
